FAERS Safety Report 6751061-6 (Version None)
Quarter: 2010Q2

REPORT INFORMATION
  Report Type: 
  Country: None (occurrence: None)
  Receive Date: 20100602
  Receipt Date: 20100519
  Transmission Date: 20101027
  Serious: Yes (Other)
  Sender: FDA-Public Use
  Company Number: PHHY2010NZ10348

PATIENT
  Sex: Male

DRUGS (2)
  1. CLOZARIL [Suspect]
     Indication: SCHIZOPHRENIA
     Dosage: 2 TABLETS IN THE MORNING AND 4 TABLETS AT NIGHT
     Dates: start: 20091109
  2. AMISULPRIDE [Concomitant]

REACTIONS (14)
  - ABNORMAL BEHAVIOUR [None]
  - AGITATION [None]
  - ANXIETY [None]
  - CONSTIPATION [None]
  - DIZZINESS [None]
  - MIDDLE INSOMNIA [None]
  - SALIVARY HYPERSECRETION [None]
  - SEDATION [None]
  - SOMNOLENCE [None]
  - SWELLING FACE [None]
  - SWOLLEN TONGUE [None]
  - URINARY INCONTINENCE [None]
  - VOMITING [None]
  - WEIGHT INCREASED [None]
